FAERS Safety Report 23443006 (Version 5)
Quarter: 2024Q1

REPORT INFORMATION
  Report Type: Spontaneous
  Country: US (occurrence: US)
  Receive Date: 20240125
  Receipt Date: 20240226
  Transmission Date: 20240410
  Serious: Yes (Other)
  Sender: FDA-Public Use
  Company Number: US-PFIZER INC-PV202400010634

PATIENT
  Age: 84 Year
  Sex: Female

DRUGS (5)
  1. IBRANCE [Suspect]
     Active Substance: PALBOCICLIB
     Indication: Neoplasm malignant
     Dosage: 125 MG, CYCLIC
  2. IBRANCE [Suspect]
     Active Substance: PALBOCICLIB
     Dosage: 100 MG
  3. IBRANCE [Suspect]
     Active Substance: PALBOCICLIB
     Dosage: 75 MG, CYCLIC (21DAYS ON THEN 7 DAYS OFF/ TAKE 1 TAB BY MOUTH DAILY 21 DAYS ON THEN 7 DAYS OFF)
     Route: 048
     Dates: start: 20240120
  4. XARELTO [Concomitant]
     Active Substance: RIVAROXABAN
     Dosage: UNK
  5. ACETAMINOPHEN\HYDROCODONE [Concomitant]
     Active Substance: ACETAMINOPHEN\HYDROCODONE
     Dosage: UNK

REACTIONS (11)
  - Neutropenia [Unknown]
  - Thrombocytopenia [Unknown]
  - Cancer pain [Unknown]
  - Anaemia [Unknown]
  - Fatigue [Not Recovered/Not Resolved]
  - Constipation [Unknown]
  - Decreased appetite [Unknown]
  - Dry skin [Unknown]
  - Alopecia [Unknown]
  - Nausea [Unknown]
  - Loss of personal independence in daily activities [Unknown]
